FAERS Safety Report 8776554 (Version 4)
Quarter: 2013Q3

REPORT INFORMATION
  Report Type: Spontaneous
  Country: FR (occurrence: FR)
  Receive Date: 20120910
  Receipt Date: 20130705
  Transmission Date: 20140515
  Serious: Yes (Other)
  Sender: FDA-Public Use
  Company Number: PHHY2012FR075231

PATIENT
  Age: 58 Year
  Sex: Male
  Weight: 78 kg

DRUGS (4)
  1. ZOMETA [Suspect]
     Indication: METASTASES TO BONE
     Dosage: EVERY 4 WEEKS
     Route: 042
     Dates: start: 200910, end: 201202
  2. SUTENT [Suspect]
     Indication: METASTASES TO BONE
     Dosage: 50 MG, UNK
     Dates: start: 200910, end: 201206
  3. SUTENT [Suspect]
     Dosage: 50 MG, UNK
     Dates: end: 201205
  4. AXITINIB [Suspect]
     Dosage: UNK UKN, UNK

REACTIONS (15)
  - Osteonecrosis of jaw [Not Recovered/Not Resolved]
  - Exposed bone in jaw [Not Recovered/Not Resolved]
  - Pain [Not Recovered/Not Resolved]
  - Oral disorder [Not Recovered/Not Resolved]
  - Oral mucosal erythema [Not Recovered/Not Resolved]
  - Swelling [Not Recovered/Not Resolved]
  - Purulent discharge [Unknown]
  - Trismus [Unknown]
  - Hypophagia [Unknown]
  - Speech disorder [Unknown]
  - Face oedema [Unknown]
  - Jaw fracture [Unknown]
  - Lymph node pain [Not Recovered/Not Resolved]
  - Lymphadenopathy [Not Recovered/Not Resolved]
  - Pain in extremity [Unknown]
